FAERS Safety Report 5841771-7 (Version None)
Quarter: 2008Q3

REPORT INFORMATION
  Report Type: 
  Country: None (occurrence: None)
  Receive Date: 20080811
  Receipt Date: 20080811
  Transmission Date: 20090109
  Serious: No
  Sender: FDA-Public Use
  Company Number: None

PATIENT
  Age: 46 Year
  Sex: Female
  Weight: 59.8748 kg

DRUGS (2)
  1. LEVAQUIN [Suspect]
     Dosage: IV DRIP
     Route: 041
     Dates: start: 20080707, end: 20080712
  2. PREDNISONE TAB [Concomitant]

REACTIONS (3)
  - LOSS OF EMPLOYMENT [None]
  - PAIN [None]
  - TENDONITIS [None]
